FAERS Safety Report 4356931-4 (Version None)
Quarter: 2004Q2

REPORT INFORMATION
  Report Type: 
  Country: None (occurrence: None)
  Receive Date: 20040507
  Receipt Date: 20040427
  Transmission Date: 20050107
  Serious: Yes (Hospitalization)
  Sender: FDA-Public Use
  Company Number: JP-JNJFOC-20040405511

PATIENT
  Age: 68 Year
  Sex: Male

DRUGS (15)
  1. OFLOXACIN [Suspect]
     Indication: ENTEROCOLITIS INFECTIOUS
     Dosage: 200 MG, ORAL
     Route: 048
     Dates: start: 20040211, end: 20040216
  2. SINTROM [Suspect]
     Indication: ATRIAL FIBRILLATION
     Dosage: 0.75 MG, ORAL
     Route: 048
  3. ULTRA LEVURE LYOPHILISEE (SACCHAROMYCES BOULARDII) [Concomitant]
  4. SPASAFON (PHLOROGLUCINOL) [Concomitant]
  5. ERCEFURYL (NIFUROXAZIDE) [Concomitant]
  6. COVERSYL (PERINDOPRIL) [Concomitant]
  7. SOTALOL HCL [Concomitant]
  8. HEMIGOXINE (DIGOXIN) [Concomitant]
  9. ATHYMIL (MIANSERIN HYDROCHLORIDE) [Concomitant]
  10. GLUCOPHAGE [Concomitant]
  11. ZOCOR [Concomitant]
  12. NOVONORM (REPAGLINIDE) [Concomitant]
  13. AMLODIPINE BESYLATE [Concomitant]
  14. DEXTROPROPOXYPHENE (DEEXTROPROPOXYPHENE) [Concomitant]
  15. DOGMATIL (SULPIRIDE) [Concomitant]

REACTIONS (7)
  - DRUG INTERACTION [None]
  - HAEMATURIA [None]
  - HAEMOGLOBIN DECREASED [None]
  - HAEMORRHAGE [None]
  - INTERNATIONAL NORMALISED RATIO INCREASED [None]
  - MELAENA [None]
  - PROTHROMBIN TIME SHORTENED [None]
